FAERS Safety Report 7093587-4 (Version None)
Quarter: 2010Q4

REPORT INFORMATION
  Report Type: 
  Country: None (occurrence: None)
  Receive Date: 20101110
  Receipt Date: 20060203
  Transmission Date: 20110411
  Serious: Yes (Other)
  Sender: FDA-Public Use
  Company Number: NZ-ROCHE-737553

PATIENT

DRUGS (4)
  1. HERCEPTIN [Suspect]
     Route: 065
  2. HERCEPTIN [Suspect]
     Route: 065
  3. DOCETAXEL [Concomitant]
     Route: 065
  4. XELODA [Concomitant]
     Route: 065

REACTIONS (1)
  - DISEASE PROGRESSION [None]
